FAERS Safety Report 17278646 (Version 1)
Quarter: 2020Q1

REPORT INFORMATION
  Report Type: Spontaneous
  Country: US (occurrence: US)
  Receive Date: 20200116
  Receipt Date: 20200116
  Transmission Date: 20200409
  Serious: No
  Sender: FDA-Public Use
  Company Number: US-PFIZER INC-2020017391

PATIENT
  Age: 58 Year
  Sex: Male
  Weight: 72.57 kg

DRUGS (2)
  1. DEPO-TESTOSTERONE [Suspect]
     Active Substance: TESTOSTERONE CYPIONATE
     Dosage: 200 MG/ML, UNK  (TOOK 3 SHOTS OUT OF IT)
  2. DEPO-TESTOSTERONE [Suspect]
     Active Substance: TESTOSTERONE CYPIONATE
     Indication: ANDROGEN DEFICIENCY
     Dosage: 0.75 ML, WEEKLY

REACTIONS (6)
  - Product deposit [Unknown]
  - Pain [Unknown]
  - Abdominal pain upper [Unknown]
  - Influenza [Recovering/Resolving]
  - Headache [Unknown]
  - Pain in extremity [Unknown]

NARRATIVE: CASE EVENT DATE: 201912
